FAERS Safety Report 8052655-0 (Version None)
Quarter: 2012Q1

REPORT INFORMATION
  Report Type: 
  Country: None (occurrence: None)
  Receive Date: 20120118
  Receipt Date: 20120112
  Transmission Date: 20120608
  Serious: No
  Sender: FDA-Public Use
  Company Number: US-PFIZER INC-2012009277

PATIENT
  Sex: Male
  Weight: 99.8 kg

DRUGS (3)
  1. CHANTIX [Suspect]
     Indication: SMOKING CESSATION THERAPY
     Dosage: 0.5 MG, DAILY
     Route: 048
     Dates: start: 20111227
  2. MULTI-VITAMINS [Concomitant]
     Dosage: UNK
  3. FISH OIL [Concomitant]
     Dosage: UNK

REACTIONS (5)
  - WITHDRAWAL SYNDROME [None]
  - PAROSMIA [None]
  - THERAPEUTIC RESPONSE UNEXPECTED [None]
  - EMOTIONAL DISORDER [None]
  - TENSION [None]
